FAERS Safety Report 5346906-0 (Version None)
Quarter: 2007Q2

REPORT INFORMATION
  Report Type: 
  Country: None (occurrence: None)
  Receive Date: 20070502
  Receipt Date: 20070322
  Transmission Date: 20071010
  Serious: Yes (Other)
  Sender: FDA-Public Use
  Company Number: 154520USA

PATIENT
  Sex: Female

DRUGS (1)
  1. SALBUTAMOL SULFATE                        (SALBUTAMOL) [Suspect]
     Dosage: RESPIRATORY (INHALATION)
     Route: 055

REACTIONS (5)
  - DIZZINESS [None]
  - EYE IRRITATION [None]
  - GLOSSODYNIA [None]
  - SYSTOLIC HYPERTENSION [None]
  - VISION BLURRED [None]
